FAERS Safety Report 10973924 (Version 1)
Quarter: 2015Q1

REPORT INFORMATION
  Report Type: Spontaneous
  Country: None (occurrence: None)
  Receive Date: 20150331
  Receipt Date: 20150331
  Transmission Date: 20150721
  Serious: Yes (Other)
  Sender: FDA-Public Use
  Company Number: None

PATIENT

DRUGS (1)
  1. METFORMIN HCL [Suspect]
     Active Substance: METFORMIN HYDROCHLORIDE
     Indication: TYPE 2 DIABETES MELLITUS
     Dosage: 500MG/2
     Route: 048
     Dates: start: 20150216

REACTIONS (3)
  - Gastrointestinal disorder [None]
  - Product odour abnormal [None]
  - Diarrhoea [None]

NARRATIVE: CASE EVENT DATE: 20150326
